FAERS Safety Report 5550531-6 (Version None)
Quarter: 2007Q4

REPORT INFORMATION
  Report Type: 
  Country: None (occurrence: None)
  Receive Date: 20071210
  Receipt Date: 20071126
  Transmission Date: 20080405
  Serious: Yes (Hospitalization, Other)
  Sender: FDA-Public Use
  Company Number: 43222

PATIENT
  Age: 34 Year
  Sex: Male

DRUGS (1)
  1. COLCHICUM JTL LIQ [Suspect]
     Indication: BEHCET'S SYNDROME
     Dosage: 1 MG/DAY

REACTIONS (10)
  - ACUTE PROMYELOCYTIC LEUKAEMIA [None]
  - ANAEMIA [None]
  - APHTHOUS STOMATITIS [None]
  - ECCHYMOSIS [None]
  - EXERCISE TOLERANCE DECREASED [None]
  - HAEMATURIA [None]
  - HAEMORRHAGIC DIATHESIS [None]
  - LEUKOPENIA [None]
  - RASH PUSTULAR [None]
  - SPLENOMEGALY [None]
